FAERS Safety Report 8479957-8 (Version None)
Quarter: 2012Q2

REPORT INFORMATION
  Report Type: 
  Country: None (occurrence: None)
  Receive Date: 20120629
  Receipt Date: 20120620
  Transmission Date: 20120825
  Serious: Yes (Other)
  Sender: FDA-Public Use
  Company Number: US-ABBOTT-12P-163-0948697-00

PATIENT
  Sex: Male

DRUGS (5)
  1. HUMIRA [Suspect]
     Indication: RHEUMATOID ARTHRITIS
     Dates: start: 20100101, end: 20100101
  2. HUMIRA [Suspect]
     Dates: start: 20110101, end: 20110101
  3. HUMIRA [Suspect]
     Dates: start: 20100101, end: 20110101
  4. HUMIRA [Suspect]
     Dates: start: 20120301, end: 20120501
  5. HUMIRA [Suspect]
     Dates: start: 20110101, end: 20120201

REACTIONS (6)
  - GAIT DISTURBANCE [None]
  - ARTHRALGIA [None]
  - WALKING AID USER [None]
  - PROSTATE INFECTION [None]
  - JOINT SWELLING [None]
  - DRUG INEFFECTIVE [None]
